FAERS Safety Report 8763738 (Version 2)
Quarter: 2012Q4

REPORT INFORMATION
  Report Type: 
  Country: AU (occurrence: AU)
  Receive Date: 20120831
  Receipt Date: 20120920
  Transmission Date: 20130627
  Serious: Yes (Other)
  Sender: FDA-Public Use
  Company Number: PHHY2012AU075053

PATIENT
  Sex: Female

DRUGS (2)
  1. ACLASTA [Suspect]
     Dosage: 5 mg
     Route: 042
     Dates: start: 20110411
  2. ACLASTA [Suspect]
     Dosage: 5 mg
     Route: 042
     Dates: start: 20120828

REACTIONS (6)
  - Eye infection [Recovered/Resolved]
  - Nasopharyngitis [Recovered/Resolved]
  - Feeling cold [Recovered/Resolved]
  - Mobility decreased [Recovered/Resolved]
  - Malaise [Recovered/Resolved]
  - Arthralgia [Recovered/Resolved]
